FAERS Safety Report 10225537 (Version 1)
Quarter: 2014Q1

REPORT INFORMATION
  Report Type: Spontaneous
  Country: US (occurrence: None)
  Receive Date: 20140306
  Receipt Date: 20140306
  Transmission Date: 20141002
  Serious: Yes (Hospitalization, Other)
  Sender: FDA-Public Use
  Company Number: 163-21880-13113129

PATIENT
  Age: 67 Year
  Sex: Male
  Weight: 59.9 kg

DRUGS (51)
  1. REVLIMID [Suspect]
     Indication: PLASMA CELL MYELOMA
     Dosage: 25 MG, 21 IN 21 D, PO
     Route: 048
     Dates: start: 20110913
  2. DEXAMETHASONE [Suspect]
     Indication: PLASMA CELL MYELOMA
     Route: 048
     Dates: start: 20110913
  3. ELOTUZUMAB [Suspect]
     Indication: PLASMA CELL MYELOMA
     Dosage: DAY 1 + 15, IV
     Dates: start: 20110913
  4. NEURONTIN (GABAPENTIN) [Concomitant]
  5. QUALAQUIN (QUININE SULFATE) [Concomitant]
  6. CYCLOBENZAPRINE (CYCLOBENZAPRINE) [Concomitant]
  7. ATARAX (HYDROXYZINE HYDROCHLORIDE) [Concomitant]
  8. SOLUMEDROL (METHYLPREDNISOLONE SODIUM SUCCINATE) [Concomitant]
  9. ZANTAC (RANITIDINE HYDROCHLORIDE) [Concomitant]
  10. ACETAMINOPHEN (PARACETAMOL) [Concomitant]
  11. MARCAL HC (CALCIUM ACETATE) [Concomitant]
  12. LOMOTIL (LOMOTIL) [Concomitant]
  13. CHOLESTYRAMINE (COLESTYRAMINE) [Concomitant]
  14. TAMSULOSIN (TAMSULOSIN) [Concomitant]
  15. CALCIUM (CALCIUM) [Concomitant]
  16. LASIX (FUROSEMIDE) [Concomitant]
  17. CHLORHEXIDINE (CHLORHEXIDINE) [Concomitant]
  18. CALCIUM CARBONATE (CALCIUM CARBONATE) (CALCIUM CARBONATE) [Concomitant]
  19. LORTAB (VICODIN) [Concomitant]
  20. MORPHINE (MORPHINE) [Concomitant]
  21. NEXIUM (ESOMEPRAZOLE) [Concomitant]
  22. ZYRTEC (CETIRIZINE HYDROCHLORIDE) [Concomitant]
  23. MULTIVITAMIN (MULTIVITAMINS) [Concomitant]
  24. K-DUR (POTASSIUM CHLORIDE) [Concomitant]
  25. VITAMIN B-12 (CYANOCOBALAMIN) [Concomitant]
  26. VITAMIN B-6 (PYRIDOXINE HYDROCHLORIDE) [Concomitant]
  27. ZOMETA (ZOLEDRONIC ACID) [Concomitant]
  28. PENICILLIN (PENICILLIN NOS) [Concomitant]
  29. TYLENOL (PARACETAMOL) [Concomitant]
  30. CARAFATE (SUCRALFATE) TABLET, 1G [Concomitant]
  31. MOTRIN (IBUPROFEN) [Concomitant]
  32. ALEVE (NAPROXEN SODIUM) [Concomitant]
  33. ZOFRAN (ONDANSETRON HYDROCHLORIDE) [Concomitant]
  34. CALCIUM GLUCONATE (CALCIUM GLUCONATE) [Concomitant]
  35. POTASSIUM CHLORIDE (POTASSIUM CHLORIDE) [Concomitant]
  36. LUNESTA [Concomitant]
  37. CEFAZOLIN (CEFAZOLIN) [Concomitant]
  38. PROTONIX [Concomitant]
  39. MAGNESIUM OXIDE (MAGNESIUM OXIDE) [Concomitant]
  40. MAGNESIUM SULFATE (MAGNESIUM SULFATE) (MAGNESIUM SULFATE) [Concomitant]
  41. MYLANTA (MYLANTA) [Concomitant]
  42. DONNATAL (DONNATAL) [Concomitant]
  43. LIDOCAINE VISCOUS (LIDOCAINE HYDROCHLORIDE) [Concomitant]
  44. DEXTROSE NORMAL SALINE (DEXTROSE AND SODIUM CHLORIDE INJECTION) [Concomitant]
  45. SODIUM CHLORIDE (SODIUM CHLORIDE) [Concomitant]
  46. DEXTROSE IN LACTATED RINGERS (DEXTROSE LACTATED RINGER^S) [Concomitant]
  47. IOPAMIDOL (IOPAMIDOL) [Concomitant]
  48. HEPARIN FLUSH (HEPARIN SODIUM) [Concomitant]
  49. FLEXERIL (CYCLOBENZAPRINE HYDROCHLORIDE) [Concomitant]
  50. PACKED RED BLOOD CELLS (RED BLOOD CELLS) [Concomitant]
  51. CALCIUM CARBONATE/MAGNESIUM HYDROXIDE (NOVALUCOL NOVUM) [Concomitant]

REACTIONS (5)
  - Cholecystitis [None]
  - Abdominal pain [None]
  - Nausea [None]
  - Vomiting [None]
  - Diarrhoea [None]
